FAERS Safety Report 14469737 (Version 1)
Quarter: 2018Q1

REPORT INFORMATION
  Report Type: Spontaneous
  Country: ZA (occurrence: ZA)
  Receive Date: 20180131
  Receipt Date: 20180131
  Transmission Date: 20180509
  Serious: Yes (Hospitalization)
  Sender: FDA-Public Use
  Company Number: ZA-MYLANLABS-2018M1005451

PATIENT
  Age: 69 Year
  Sex: Male

DRUGS (12)
  1. FUROSEMIDE MYLAN 40 MG TABLETTEN [Suspect]
     Active Substance: FUROSEMIDE
     Indication: DIURETIC THERAPY
     Dosage: 40 MG, UNK
     Route: 048
  2. TAREG [Concomitant]
     Active Substance: VALSARTAN
     Indication: HYPERTENSION
     Dosage: 80 MG, UNK
     Route: 048
     Dates: start: 201801
  3. PLAGROL [Concomitant]
     Active Substance: CLOPIDOGREL BISULFATE
     Indication: ANTICOAGULANT THERAPY
     Dosage: 75 MG, UNK
     Route: 048
  4. NOVOMIX [Concomitant]
     Active Substance: INSULIN ASPART
     Indication: DRUG THERAPY
     Dosage: 100 UNITS/ML, INJECTION
  5. ELANTAN [Concomitant]
     Active Substance: ISOSORBIDE MONONITRATE
     Indication: NITRATE COMPOUND THERAPY
     Dosage: 20 MG, UNK
     Route: 048
  6. CARLOC [Concomitant]
     Active Substance: CARVEDILOL
     Indication: HYPERTENSION
     Dosage: 6.25 MG, UNK
     Route: 048
     Dates: start: 201708, end: 201712
  7. SPIRACTIN                          /00006201/ [Concomitant]
     Active Substance: SPIRONOLACTONE
     Indication: DIURETIC THERAPY
     Dosage: 25 MG, UNK
     Route: 048
     Dates: start: 201801
  8. ASPAVOR [Concomitant]
     Active Substance: ATORVASTATIN
     Indication: BLOOD CHOLESTEROL
     Dosage: 20 MG, UNK
     Route: 048
     Dates: start: 201801
  9. PURICOS [Concomitant]
     Active Substance: ALLOPURINOL
     Indication: PROPHYLAXIS
     Dosage: 100 MG, UNK
     Route: 048
     Dates: start: 201801
  10. PURESIS [Concomitant]
     Active Substance: FUROSEMIDE
     Indication: DIURETIC THERAPY
     Dosage: 40 MG, UNK
     Route: 048
     Dates: start: 201801
  11. CARLOC [Concomitant]
     Active Substance: CARVEDILOL
     Dosage: 25 MG, UNK
     Route: 048
     Dates: start: 201801
  12. ECOTRIN [Concomitant]
     Active Substance: ASPIRIN
     Indication: ANTICOAGULANT THERAPY
     Dosage: 81 MG, UNK
     Route: 048

REACTIONS (1)
  - Hospitalisation [Unknown]
